FAERS Safety Report 4359145-7 (Version None)
Quarter: 2004Q2

REPORT INFORMATION
  Report Type: 
  Country: None (occurrence: None)
  Receive Date: 20040512
  Receipt Date: 20031023
  Transmission Date: 20050107
  Serious: Yes (Other)
  Sender: FDA-Public Use
  Company Number: BE-JNJFOC-20030902598

PATIENT
  Age: 53 Year
  Sex: Female

DRUGS (4)
  1. PREPULSID (CISAPRIDE) TABLETS [Suspect]
     Indication: IMPAIRED GASTRIC EMPTYING
     Dosage: 10 MG, 4 IN 1 DAY
     Route: 048
     Dates: end: 20030901
  2. NEXIUM [Concomitant]
  3. ATACAND [Concomitant]
  4. PROGYNOVA (ESTRADIOL VALERATE) [Concomitant]

REACTIONS (2)
  - ELECTROCARDIOGRAM QT CORRECTED INTERVAL PROLONGED [None]
  - ELECTROCARDIOGRAM T WAVE ABNORMAL [None]
